FAERS Safety Report 20602740 (Version 1)
Quarter: 2022Q1

REPORT INFORMATION
  Report Type: Spontaneous
  Country: IN (occurrence: IN)
  Receive Date: 20220316
  Receipt Date: 20220316
  Transmission Date: 20220424
  Serious: Yes (Other)
  Sender: FDA-Public Use
  Company Number: IN-PFIZER INC-2021847760

PATIENT
  Age: 54 Year
  Sex: Female

DRUGS (9)
  1. PALBOCICLIB [Suspect]
     Active Substance: PALBOCICLIB
     Indication: Breast cancer metastatic
     Dosage: 125 MG, 1X/DAY
     Route: 048
     Dates: start: 20201024
  2. PALBOCICLIB [Suspect]
     Active Substance: PALBOCICLIB
     Dosage: 125 MG, CYCLIC (21 DAYS ON 7 DAYS OFF)
  3. ZOLEDRONIC ACID [Concomitant]
     Active Substance: ZOLEDRONIC ACID
     Dosage: 4 MG IN 100CC NS OVER 15MINS
  4. LETROZOLE [Concomitant]
     Active Substance: LETROZOLE
     Dosage: 1 DF, DAILY (0-1-0)
  5. SHELCAL [CALCIUM CARBONATE;COLECALCIFEROL] [Concomitant]
     Dosage: 500 MG, 2X/DAY (1-0-1)
  6. FOLVITE [FOLIC ACID] [Concomitant]
     Dosage: 2 DF, DAILY (1-0-1)
  7. LIVOGEN [CYANOCOBALAMIN;FERRIC AMMONIUM CITRATE;GLYCYRRHIZA GLABRA LIQ [Concomitant]
     Dosage: 1 DF, DAILY (1-0-0)
  8. DOLO 650 [Concomitant]
     Indication: Pain
     Dosage: UNK, AS NEEDED, AFTER FOOD
  9. DOLO 650 [Concomitant]
     Indication: Pyrexia

REACTIONS (4)
  - Neutrophil count abnormal [Unknown]
  - Haemoglobin decreased [Not Recovered/Not Resolved]
  - White blood cell disorder [Unknown]
  - Weight increased [Unknown]

NARRATIVE: CASE EVENT DATE: 20220304
